FAERS Safety Report 6831642-1 (Version None)
Quarter: 2010Q3

REPORT INFORMATION
  Report Type: 
  Country: None (occurrence: None)
  Receive Date: 20100712
  Receipt Date: 20100706
  Transmission Date: 20110219
  Serious: Yes (Death)
  Sender: FDA-Public Use
  Company Number: PHHY2010JP05340

PATIENT
  Age: 71 Year
  Sex: Male

DRUGS (4)
  1. TASIGNA [Suspect]
     Indication: CHRONIC MYELOID LEUKAEMIA
     Dosage: 800 MG, DAILY
     Route: 048
     Dates: start: 20090424, end: 20090508
  2. TASIGNA [Suspect]
     Dosage: 400 MG, DAILY
     Route: 048
     Dates: start: 20090828, end: 20100113
  3. GASMOTIN [Suspect]
     Dosage: 15 MG, UNK
     Route: 048
     Dates: start: 20090828, end: 20100108
  4. PRIMPERAN TAB [Concomitant]
     Indication: PROPHYLAXIS
     Dosage: 15 MG, UNK
     Route: 048
     Dates: start: 20090828, end: 20100108

REACTIONS (4)
  - INFECTION [None]
  - MALNUTRITION [None]
  - MENINGISM [None]
  - PATHOGEN RESISTANCE [None]
